FAERS Safety Report 8333903-6 (Version None)
Quarter: 2012Q2

REPORT INFORMATION
  Report Type: 
  Country: None (occurrence: None)
  Receive Date: 20120503
  Receipt Date: 20120425
  Transmission Date: 20120825
  Serious: No
  Sender: FDA-Public Use
  Company Number: US-BAYER-2012-040967

PATIENT
  Sex: Female

DRUGS (3)
  1. CLIMARA [Suspect]
     Indication: HOT FLUSH
     Dosage: 0.025 MG/D, OW
     Route: 062
     Dates: start: 20000101
  2. CLIMARA [Suspect]
     Indication: AFFECTIVE DISORDER
  3. CLIMARA [Suspect]
     Indication: HYSTERECTOMY

REACTIONS (6)
  - JOINT SWELLING [None]
  - BLOOD CHOLESTEROL INCREASED [None]
  - WEIGHT INCREASED [None]
  - VAGINITIS BACTERIAL [None]
  - VAGINAL ODOUR [None]
  - ABDOMINAL DISTENSION [None]
